FAERS Safety Report 12527978 (Version 1)
Quarter: 2016Q3

REPORT INFORMATION
  Report Type: Spontaneous
  Country: US (occurrence: US)
  Receive Date: 20160705
  Receipt Date: 20160705
  Transmission Date: 20161109
  Serious: No
  Sender: FDA-Public Use
  Company Number: US-CELGENEUS-USA-2016063803

PATIENT
  Sex: Female

DRUGS (1)
  1. REVLIMID [Suspect]
     Active Substance: LENALIDOMIDE
     Indication: PLASMA CELL MYELOMA
     Dosage: 10 MILLIGRAM
     Route: 048
     Dates: start: 201606

REACTIONS (8)
  - Headache [Unknown]
  - Heart rate increased [Unknown]
  - Peripheral swelling [Unknown]
  - Contusion [Unknown]
  - Abdominal pain [Unknown]
  - Hypertension [Unknown]
  - Swelling [Unknown]
  - Nausea [Unknown]
